FAERS Safety Report 5149305-X (Version None)
Quarter: 2006Q4

REPORT INFORMATION
  Report Type: 
  Country: None (occurrence: None)
  Receive Date: 20061113
  Receipt Date: 20061103
  Transmission Date: 20070319
  Serious: Yes (Hospitalization)
  Sender: FDA-Public Use
  Company Number: CHF-20060220-F

PATIENT
  Age: 40 Year
  Sex: Female

DRUGS (4)
  1. BECLOMETHASONE DIPROPIONATE [Suspect]
     Indication: NASOPHARYNGITIS
     Route: 055
     Dates: start: 20060505, end: 20060505
  2. FENSPIRIDE HYDROCHLORIDE [Suspect]
     Indication: NASOPHARYNGITIS
     Route: 048
     Dates: start: 20060505, end: 20060505
  3. OXOMEMAZINE [Suspect]
     Indication: NASOPHARYNGITIS
     Route: 048
     Dates: start: 20060605, end: 20060605
  4. POLERY [Suspect]
     Indication: NASOPHARYNGITIS
     Route: 048
     Dates: start: 20060505, end: 20060505

REACTIONS (3)
  - CHEST DISCOMFORT [None]
  - DYSPHONIA [None]
  - URTICARIA [None]
